FAERS Safety Report 6045927-2 (Version None)
Quarter: 2009Q1

REPORT INFORMATION
  Report Type: 
  Country: None (occurrence: None)
  Receive Date: 20090116
  Receipt Date: 20090107
  Transmission Date: 20090719
  Serious: Yes (Death, Hospitalization, Other)
  Sender: FDA-Public Use
  Company Number: POMP-1000439

PATIENT
  Age: 15 Year
  Weight: 53 kg

DRUGS (3)
  1. MYOZYME [Suspect]
     Indication: GLYCOGEN STORAGE DISEASE TYPE II
     Dosage: 1050 MG, Q2W, INTRAVENOUS
     Route: 042
     Dates: start: 20070707, end: 20081222
  2. PREDNISOLONE SODIUM SUCCINATE INJ [Concomitant]
  3. HYDROXYZINE HCL [Concomitant]

REACTIONS (9)
  - BRAIN COMPRESSION [None]
  - BRAIN STEM SYNDROME [None]
  - CEREBELLAR INFARCTION [None]
  - CONVULSION [None]
  - FEELING HOT [None]
  - INTRACRANIAL ANEURYSM [None]
  - LOSS OF CONSCIOUSNESS [None]
  - MIOSIS [None]
  - RESPIRATORY ARREST [None]
